FAERS Safety Report 4813354-9 (Version None)
Quarter: 2005Q4

REPORT INFORMATION
  Report Type: 
  Country: None (occurrence: None)
  Receive Date: 20051028
  Receipt Date: 20051018
  Transmission Date: 20060501
  Serious: Yes (Death, Other)
  Sender: FDA-Public Use
  Company Number: ES-AVENTIS-200519319GDDC

PATIENT
  Age: 75 Year
  Sex: Female

DRUGS (8)
  1. RIFALDIN [Suspect]
     Indication: PRURITUS
     Route: 048
     Dates: start: 20020417
  2. RIFALDIN [Suspect]
     Route: 048
  3. RIFALDIN [Suspect]
     Route: 048
  4. RIFALDIN [Suspect]
     Route: 048
  5. ANTIMYCOTIC [Concomitant]
     Indication: ECZEMA
     Dosage: ROUTE: SYSTEMIC
     Route: 050
  6. ANTIMYCOTIC [Concomitant]
     Route: 061
  7. ANTI-HISTAMINE TAB [Concomitant]
     Indication: ECZEMA
     Dosage: ROUTE: SYSTEMIC
     Route: 050
  8. CORTICOSTEROIDS [Concomitant]
     Indication: ECZEMA

REACTIONS (3)
  - ACUTE PULMONARY OEDEMA [None]
  - ECZEMA [None]
  - PARANEOPLASTIC SYNDROME [None]
